FAERS Safety Report 17029620 (Version 3)
Quarter: 2019Q4

REPORT INFORMATION
  Report Type: Report from Study
  Country: US (occurrence: US)
  Receive Date: 20191114
  Receipt Date: 20191219
  Transmission Date: 20200122
  Serious: Yes (Other)
  Sender: FDA-Public Use
  Company Number: US-TESARO-2019-TSO01719-US

PATIENT
  Age: 63 Year
  Sex: Female

DRUGS (6)
  1. NIRAPARIB [Suspect]
     Active Substance: NIRAPARIB
     Dosage: 300 MG, QPM WITH FOOD
  2. L-ARGININE                         /00126101/ [Concomitant]
     Active Substance: ARGININE
     Indication: PRODUCT USED FOR UNKNOWN INDICATION
     Dosage: UNK
  3. NIRAPARIB [Suspect]
     Active Substance: NIRAPARIB
     Dosage: 300 MG, QPM IN THE EVENING WITH FOOD
     Dates: end: 20191120
  4. NIRAPARIB [Suspect]
     Active Substance: NIRAPARIB
     Indication: MALIGNANT PERITONEAL NEOPLASM
     Dosage: 300 MG, MORNING DAILY, WITH FOOD
     Route: 048
     Dates: start: 20190424
  5. VITAMIN C [Concomitant]
     Active Substance: ASCORBIC ACID
     Indication: PRODUCT USED FOR UNKNOWN INDICATION
     Dosage: UNK
  6. OMEPRAZOLE. [Concomitant]
     Active Substance: OMEPRAZOLE
     Indication: PRODUCT USED FOR UNKNOWN INDICATION

REACTIONS (11)
  - Dysphagia [Recovered/Resolved]
  - Dyspepsia [Unknown]
  - Oropharyngeal pain [Unknown]
  - Tumour marker increased [Unknown]
  - Nausea [Unknown]
  - Metastases to liver [Unknown]
  - Platelet count decreased [Recovering/Resolving]
  - Headache [Unknown]
  - Hypertension [Recovered/Resolved]
  - Nasopharyngitis [Unknown]
  - Disease progression [Unknown]

NARRATIVE: CASE EVENT DATE: 201905
